FAERS Safety Report 24235903 (Version 3)
Quarter: 2025Q1

REPORT INFORMATION
  Report Type: Report from Study
  Country: US (occurrence: US)
  Receive Date: 20240822
  Receipt Date: 20250314
  Transmission Date: 20250409
  Serious: Yes (Other)
  Sender: TAKEDA
  Company Number: US-PAREXEL-2021-KAM-US003535

PATIENT
  Sex: Female
  Weight: 45 kg

DRUGS (25)
  1. GLASSIA [Suspect]
     Active Substance: .ALPHA.1-PROTEINASE INHIBITOR HUMAN
     Indication: Alpha-1 antitrypsin deficiency
     Dosage: 60 MILLIGRAM/KILOGRAM, 1/WEEK
     Dates: start: 20140916
  2. GLASSIA [Suspect]
     Active Substance: .ALPHA.1-PROTEINASE INHIBITOR HUMAN
     Dosage: 60 MILLIGRAM/KILOGRAM, 1/WEEK
  3. EPINEPHRINE [Concomitant]
     Active Substance: EPINEPHRINE
  4. DULOXETINE HYDROCHLORIDE [Concomitant]
     Active Substance: DULOXETINE HYDROCHLORIDE
  5. FUROSEMIDE [Concomitant]
     Active Substance: FUROSEMIDE
  6. ALBUTEROL\IPRATROPIUM [Concomitant]
     Active Substance: ALBUTEROL\IPRATROPIUM
  7. SODIUM CHLORIDE [Concomitant]
     Active Substance: SODIUM CHLORIDE
  8. LISINOPRIL [Concomitant]
     Active Substance: LISINOPRIL
  9. ALBUTEROL SULFATE [Concomitant]
     Active Substance: ALBUTEROL SULFATE
  10. OXYGEN [Concomitant]
     Active Substance: OXYGEN
  11. DIPHENHYDRAMINE HYDROCHLORIDE [Concomitant]
     Active Substance: DIPHENHYDRAMINE HYDROCHLORIDE
  12. MORPHINE SULFATE [Concomitant]
     Active Substance: MORPHINE SULFATE
     Indication: Product used for unknown indication
  13. SYMBICORT [Concomitant]
     Active Substance: BUDESONIDE\FORMOTEROL FUMARATE DIHYDRATE
  14. DIPHENHYDRAMINE [Concomitant]
     Active Substance: DIPHENHYDRAMINE
  15. DULOXETINE [Concomitant]
     Active Substance: DULOXETINE
  16. LACTULOSE [Concomitant]
     Active Substance: LACTULOSE
  17. SPIRIVA [Concomitant]
     Active Substance: TIOTROPIUM BROMIDE MONOHYDRATE
  18. VENTOLIN [Concomitant]
     Active Substance: ALBUTEROL SULFATE
  19. COLACE [Concomitant]
     Active Substance: DOCUSATE SODIUM
  20. CYMBALTA [Concomitant]
     Active Substance: DULOXETINE HYDROCHLORIDE
  21. PREDNISONE [Concomitant]
     Active Substance: PREDNISONE
  22. POLYTRIM [Concomitant]
     Active Substance: POLYMYXIN B SULFATE\TRIMETHOPRIM SULFATE
  23. DUONEB [Concomitant]
     Active Substance: ALBUTEROL SULFATE\IPRATROPIUM BROMIDE
  24. LASIX [Concomitant]
     Active Substance: FUROSEMIDE
  25. NITROSTAT [Concomitant]
     Active Substance: NITROGLYCERIN

REACTIONS (11)
  - Cardiac failure [Unknown]
  - Pain in extremity [Unknown]
  - Illness [Unknown]
  - Contusion [Recovered/Resolved]
  - Poor venous access [Recovered/Resolved]
  - Seasonal allergy [Unknown]
  - Cardiac disorder [Unknown]
  - Insurance issue [Unknown]
  - Product use issue [Unknown]
  - Dyspnoea exertional [Unknown]
  - Sluggishness [Recovering/Resolving]
